FAERS Safety Report 8422158-X (Version None)
Quarter: 2012Q2

REPORT INFORMATION
  Report Type: 
  Country: None (occurrence: None)
  Receive Date: 20120608
  Receipt Date: 20120530
  Transmission Date: 20120825
  Serious: Yes (Disabling, Other)
  Sender: FDA-Public Use
  Company Number: BR-ASTRAZENECA-2012SE36575

PATIENT
  Age: 67 Year
  Sex: Male
  Weight: 87 kg

DRUGS (9)
  1. NEXIUM [Suspect]
     Dosage: 40 MG BY MORNING AND 20 MG AT NIGHT
     Route: 048
     Dates: start: 20120501, end: 20120501
  2. CRESTOR [Suspect]
     Indication: BLOOD CHOLESTEROL INCREASED
     Route: 048
     Dates: start: 19980101
  3. DIUPRES [Concomitant]
  4. NEXIUM [Suspect]
     Indication: GASTRITIS
     Route: 048
     Dates: start: 20050101, end: 20120501
  5. MOTILIUM [Concomitant]
  6. ASPIRIN PREVENT [Concomitant]
  7. CARDIZEM [Concomitant]
     Route: 048
  8. NEXIUM [Suspect]
     Route: 048
     Dates: start: 20120501
  9. PROPRANOLOL [Suspect]
     Indication: ARRHYTHMIA
     Route: 048

REACTIONS (4)
  - GASTRITIS [None]
  - INTENTIONAL DRUG MISUSE [None]
  - HYPOACUSIS [None]
  - ROAD TRAFFIC ACCIDENT [None]
